FAERS Safety Report 15615637 (Version 1)
Quarter: 2018Q4

REPORT INFORMATION
  Report Type: Spontaneous
  Country: US (occurrence: US)
  Receive Date: 20181114
  Receipt Date: 20181114
  Transmission Date: 20190205
  Serious: No
  Sender: FDA-Public Use
  Company Number: US-ASTRAZENECA-2018SF35910

PATIENT

DRUGS (1)
  1. CRESTOR [Suspect]
     Active Substance: ROSUVASTATIN CALCIUM
     Route: 048

REACTIONS (8)
  - Arthralgia [Unknown]
  - Gastrointestinal disorder [Unknown]
  - Asthenia [Unknown]
  - Pain [Unknown]
  - Nausea [Unknown]
  - Discomfort [Unknown]
  - Gait disturbance [Unknown]
  - Fatigue [Unknown]
